FAERS Safety Report 4566420-X (Version None)
Quarter: 2005Q1

REPORT INFORMATION
  Report Type: 
  Country: None (occurrence: None)
  Receive Date: 20050128
  Receipt Date: 20050111
  Transmission Date: 20050727
  Serious: Yes (Hospitalization)
  Sender: FDA-Public Use
  Company Number: 128637

PATIENT
  Sex: Female

DRUGS (1)
  1. AVONEX [Suspect]
     Indication: MULTIPLE SCLEROSIS
     Dosage: QW, IM
     Route: 030
     Dates: end: 19990101

REACTIONS (2)
  - BLINDNESS UNILATERAL [None]
  - CEREBROVASCULAR ACCIDENT [None]
